FAERS Safety Report 21373837 (Version 1)
Quarter: 2022Q3

REPORT INFORMATION
  Report Type: Report from Study
  Country: US (occurrence: US)
  Receive Date: 20220926
  Receipt Date: 20220926
  Transmission Date: 20221027
  Serious: Yes (Death, Hospitalization, Other)
  Sender: FDA-Public Use
  Company Number: US-CELGENE-USA-20210402992

PATIENT
  Age: 70 Year
  Sex: Male
  Weight: 94.800 kg

DRUGS (11)
  1. POMALIDOMIDE [Suspect]
     Active Substance: POMALIDOMIDE
     Indication: Plasma cell myeloma
     Route: 048
     Dates: start: 20170413, end: 20170420
  2. POMALIDOMIDE [Suspect]
     Active Substance: POMALIDOMIDE
     Dosage: FREQUENCY TEXT: DAY 1, 2?4 MILLIGRAM
     Route: 048
     Dates: start: 20191106, end: 20200205
  3. DECADRON [Suspect]
     Active Substance: DEXAMETHASONE
     Indication: Plasma cell myeloma
     Dosage: 20 MILLIGRAM
     Route: 048
     Dates: start: 20140814, end: 20150817
  4. DECADRON [Suspect]
     Active Substance: DEXAMETHASONE
     Dosage: 40 MILLIGRAM
     Route: 048
     Dates: start: 20151116, end: 20160418
  5. DECADRON [Suspect]
     Active Substance: DEXAMETHASONE
     Dosage: FREQUENCY TEXT: DAY 1, 2?4 MILLIGRAM
     Route: 042
     Dates: start: 20160418, end: 20160726
  6. DECADRON [Suspect]
     Active Substance: DEXAMETHASONE
     Dosage: FREQUENCY TEXT: DAY 1, 8, 15, 22?20 MILLIGRAM
     Route: 048
     Dates: start: 20200616, end: 20200907
  7. DECADRON [Suspect]
     Active Substance: DEXAMETHASONE
     Dosage: 40 MILLIGRAM
     Route: 048
     Dates: start: 20201020, end: 20201020
  8. DECADRON [Suspect]
     Active Substance: DEXAMETHASONE
     Dosage: Q 28D
     Route: 048
     Dates: start: 20200929, end: 20201020
  9. DECADRON [Suspect]
     Active Substance: DEXAMETHASONE
     Dosage: D1D18D15
     Route: 042
     Dates: start: 20190514, end: 20191016
  10. DECADRON [Suspect]
     Active Substance: DEXAMETHASONE
     Route: 048
     Dates: start: 20190605, end: 20191023
  11. BLENREP [Suspect]
     Active Substance: BELANTAMAB MAFODOTIN-BLMF
     Indication: Plasma cell myeloma
     Route: 042
     Dates: start: 20200929, end: 20201020

REACTIONS (2)
  - Renal failure [Fatal]
  - Plasma cell myeloma [Fatal]

NARRATIVE: CASE EVENT DATE: 20201021
